FAERS Safety Report 25637597 (Version 1)
Quarter: 2025Q3

REPORT INFORMATION
  Report Type: Report from Study
  Country: US (occurrence: US)
  Receive Date: 20250804
  Receipt Date: 20250804
  Transmission Date: 20251020
  Serious: Yes (Hospitalization)
  Sender: REGENERON
  Company Number: US-REGENERON PHARMACEUTICALS, INC.-2025-122372

PATIENT
  Sex: Female

DRUGS (1)
  1. EYLEA [Suspect]
     Active Substance: AFLIBERCEPT
     Indication: Product used for unknown indication
     Dosage: 2 MG, EVERY 30 DAYS, INTO LEFT EYE, STRENGTH: 2 MG/0.05 ML, FORMULATION: PFS GERRESHEIMER

REACTIONS (1)
  - Hospitalisation [Recovered/Resolved]
